FAERS Safety Report 23092139 (Version 1)
Quarter: 2023Q4

REPORT INFORMATION
  Report Type: Spontaneous
  Country: US (occurrence: US)
  Receive Date: 20231021
  Receipt Date: 20231021
  Transmission Date: 20240109
  Serious: Yes (Death, Hospitalization, Other)
  Sender: FDA-Public Use
  Company Number: US-GRANULES-US-2023GRALIT00282

PATIENT
  Sex: Female

DRUGS (1)
  1. COLCHICINE [Suspect]
     Active Substance: COLCHICINE
     Indication: Product used for unknown indication
     Route: 065

REACTIONS (14)
  - Respiratory acidosis [Fatal]
  - Lactic acidosis [Fatal]
  - Hypotension [Fatal]
  - Toxic cardiomyopathy [Fatal]
  - Renal failure [Fatal]
  - Liver injury [Fatal]
  - Hepatic failure [Fatal]
  - Hypoglycaemia [Fatal]
  - Toxicity to various agents [Fatal]
  - Disseminated intravascular coagulation [Fatal]
  - Multiple organ dysfunction syndrome [Fatal]
  - Diarrhoea [Fatal]
  - Leukocytosis [Fatal]
  - Intentional overdose [Unknown]
